FAERS Safety Report 8496615-4 (Version None)
Quarter: 2012Q3

REPORT INFORMATION
  Report Type: 
  Country: None (occurrence: None)
  Receive Date: 20120709
  Receipt Date: 20120702
  Transmission Date: 20120928
  Serious: Yes (Hospitalization)
  Sender: FDA-Public Use
  Company Number: NL-PFIZER INC-2012157835

PATIENT

DRUGS (2)
  1. REVATIO [Suspect]
     Indication: LUNG DISORDER
     Dosage: 10 MG, 3X/DAY
     Route: 048
  2. REVATIO [Suspect]
     Route: 042

REACTIONS (1)
  - HYPOTENSION [None]
